FAERS Safety Report 16925233 (Version 1)
Quarter: 2019Q4

REPORT INFORMATION
  Report Type: Spontaneous
  Country: US (occurrence: US)
  Receive Date: 20190823
  Receipt Date: 20190823
  Transmission Date: 20200122
  Serious: No
  Sender: FDA-Public Use
  Company Number: None

PATIENT
  Age: 71 Year
  Sex: Female

DRUGS (1)
  1. MAVYRET [Suspect]
     Active Substance: GLECAPREVIR\PIBRENTASVIR
     Indication: CHRONIC HEPATITIS C
     Route: 048
     Dates: start: 201907

REACTIONS (5)
  - Feeling abnormal [None]
  - Muscle spasms [None]
  - Dehydration [None]
  - Nightmare [None]
  - Syncope [None]

NARRATIVE: CASE EVENT DATE: 20190823
